FAERS Safety Report 20718839 (Version 1)
Quarter: 2022Q2

REPORT INFORMATION
  Report Type: Spontaneous
  Country: PL (occurrence: PL)
  Receive Date: 20220418
  Receipt Date: 20220418
  Transmission Date: 20220721
  Serious: Yes (Other)
  Sender: FDA-Public Use
  Company Number: PL-TEVA-2022-PL-2027519

PATIENT
  Age: 31 Year
  Sex: Male

DRUGS (5)
  1. DICLOFENAC [Suspect]
     Active Substance: DICLOFENAC
     Route: 065
  2. ATORVASTATIN [Interacting]
     Active Substance: ATORVASTATIN
     Route: 065
  3. ACETAMINOPHEN\TRAMADOL [Suspect]
     Active Substance: ACETAMINOPHEN\TRAMADOL
     Dosage: AT A DOSE OF 37.5 / 325 MG TWICE A DAY
     Route: 065
  4. SERTRALINE [Suspect]
     Active Substance: SERTRALINE HYDROCHLORIDE
     Route: 065
  5. TADALAFIL [Suspect]
     Active Substance: TADALAFIL
     Dosage: TO BE TAKEN ON DEMAND (AS NEEDED)
     Route: 065

REACTIONS (9)
  - Erectile dysfunction [Recovered/Resolved]
  - Drug interaction [Unknown]
  - Drug ineffective [Unknown]
  - Pain [Recovered/Resolved]
  - Hyperaesthesia [Recovered/Resolved]
  - Anorgasmia [Recovered/Resolved]
  - Blood pressure increased [Unknown]
  - Tachycardia [Unknown]
  - Tachypnoea [Unknown]
